FAERS Safety Report 14308106 (Version 4)
Quarter: 2018Q1

REPORT INFORMATION
  Report Type: Spontaneous
  Country: IT (occurrence: IT)
  Receive Date: 20171220
  Receipt Date: 20180129
  Transmission Date: 20180509
  Serious: Yes (Other)
  Sender: FDA-Public Use
  Company Number: IT-AMGEN-ITASP2017186272

PATIENT
  Age: 70 Year
  Sex: Male

DRUGS (10)
  1. PANITUMUMAB [Suspect]
     Active Substance: PANITUMUMAB
     Dosage: 3.6 MG/KG, Q3WK
     Route: 042
     Dates: start: 201506
  2. LEUCOVORIN. [Suspect]
     Active Substance: LEUCOVORIN
     Indication: ADENOCARCINOMA OF COLON
     Dosage: 200 MG/M2, 2 HR INFUSION (Q2WK)
     Route: 065
     Dates: start: 201410, end: 201501
  3. BEVACIZUMAB. [Suspect]
     Active Substance: BEVACIZUMAB
     Indication: ADENOCARCINOMA OF COLON
     Dosage: 7.5 UNK, CYCLICAL
     Route: 065
     Dates: start: 201204, end: 201312
  4. CAPECITABINE. [Suspect]
     Active Substance: CAPECITABINE
     Indication: ADENOCARCINOMA OF COLON
     Dosage: 1000 MG/M2, Q3WK (FROM D1-14 EVERY 21D )
     Route: 065
     Dates: start: 201204, end: 201312
  5. IRINOTECAN [Suspect]
     Active Substance: IRINOTECAN
     Indication: OFF LABEL USE
  6. 5-FU [Suspect]
     Active Substance: FLUOROURACIL
     Dosage: 2400 MG/M2, 46-H CONTINUOUS INFUSION, Q2WK
     Route: 041
     Dates: start: 201410, end: 201501
  7. PANITUMUMAB [Suspect]
     Active Substance: PANITUMUMAB
     Indication: ADENOCARCINOMA OF COLON
     Dosage: 6 MG/KG, Q2WK (EVERY 14 DAYS)
     Route: 065
     Dates: start: 201410, end: 201506
  8. OXALIPLATIN. [Suspect]
     Active Substance: OXALIPLATIN
     Indication: ADENOCARCINOMA OF COLON
     Dosage: ON DAY 1, FOR 7 CYCLES, CYCLICAL
     Route: 065
     Dates: start: 201204
  9. IRINOTECAN [Suspect]
     Active Substance: IRINOTECAN
     Indication: ADENOCARCINOMA OF COLON
     Dosage: 180 MG/M2, Q2WK
     Route: 065
     Dates: start: 201410, end: 201501
  10. 5-FU [Suspect]
     Active Substance: FLUOROURACIL
     Indication: ADENOCARCINOMA OF COLON
     Dosage: 400 MG/M2, Q2WK
     Route: 040
     Dates: start: 201410, end: 201501

REACTIONS (6)
  - Diarrhoea [Unknown]
  - Skin toxicity [Unknown]
  - Drug effective for unapproved indication [Unknown]
  - Neutropenia [Unknown]
  - Asthenia [Unknown]
  - Off label use [Unknown]

NARRATIVE: CASE EVENT DATE: 201410
